FAERS Safety Report 17915025 (Version 2)
Quarter: 2020Q3

REPORT INFORMATION
  Report Type: Spontaneous
  Country: AT (occurrence: AT)
  Receive Date: 20200618
  Receipt Date: 20200701
  Transmission Date: 20201103
  Serious: Yes (Life-Threatening, Hospitalization)
  Sender: FDA-Public Use
  Company Number: AT-BAXTER-2020BAX012612

PATIENT
  Sex: Male

DRUGS (10)
  1. PROGESTERONE. [Concomitant]
     Active Substance: PROGESTERONE
     Indication: PRODUCT USED FOR UNKNOWN INDICATION
     Route: 064
  2. DOXIL [Suspect]
     Active Substance: DOXORUBICIN HYDROCHLORIDE
     Indication: ANAPLASTIC LARGE-CELL LYMPHOMA
     Route: 064
  3. CYTARABINE. [Concomitant]
     Active Substance: CYTARABINE
     Indication: ANAPLASTIC LARGE-CELL LYMPHOMA
     Route: 064
  4. CYCLOPHOSPHAMIDE. [Concomitant]
     Active Substance: CYCLOPHOSPHAMIDE
     Indication: ANAPLASTIC LARGE-CELL LYMPHOMA
     Route: 064
  5. VINCRISTINE [Concomitant]
     Active Substance: VINCRISTINE
     Indication: ANAPLASTIC LARGE-CELL LYMPHOMA
     Route: 064
  6. IFOSFAMIDE. [Concomitant]
     Active Substance: IFOSFAMIDE
     Indication: ANAPLASTIC LARGE-CELL LYMPHOMA
     Route: 064
  7. VINDESINE [Concomitant]
     Active Substance: VINDESINE
     Indication: ANAPLASTIC LARGE-CELL LYMPHOMA
     Route: 064
  8. METHOTREXATE. [Concomitant]
     Active Substance: METHOTREXATE
     Indication: ANAPLASTIC LARGE-CELL LYMPHOMA
     Route: 064
  9. HEXOPRENALINE [Concomitant]
     Active Substance: HEXOPRENALINE
     Indication: TOCOLYSIS
     Route: 064
  10. ETOPOSIDE. [Concomitant]
     Active Substance: ETOPOSIDE
     Indication: ANAPLASTIC LARGE-CELL LYMPHOMA
     Route: 064

REACTIONS (12)
  - Hypertension neonatal [Recovering/Resolving]
  - Infantile apnoea [Recovering/Resolving]
  - Retinopathy of prematurity [Recovering/Resolving]
  - Premature baby [Recovering/Resolving]
  - Intraventricular haemorrhage neonatal [Recovered/Resolved]
  - Bradycardia neonatal [Recovering/Resolving]
  - Neonatal respiratory distress syndrome [Recovering/Resolving]
  - Anaemia neonatal [Recovering/Resolving]
  - Low birth weight baby [Recovering/Resolving]
  - Patent ductus arteriosus [Recovering/Resolving]
  - Neonatal respiratory failure [Recovering/Resolving]
  - Foetal exposure during pregnancy [Unknown]
